FAERS Safety Report 9818889 (Version 3)
Quarter: 2014Q2

REPORT INFORMATION
  Report Type: Report from Study
  Country: AU (occurrence: AU)
  Receive Date: 20140115
  Receipt Date: 20140508
  Transmission Date: 20141212
  Serious: Yes (Hospitalization)
  Sender: FDA-Public Use
  Company Number: AU-SA-2013SA133326

PATIENT
  Age: 73 Year
  Sex: Male

DRUGS (9)
  1. OXALIPLATIN [Suspect]
     Indication: COLORECTAL CANCER METASTATIC
     Dosage: INFUSION
     Route: 042
     Dates: start: 20131120, end: 20131120
  2. OXALIPLATIN [Suspect]
     Indication: COLORECTAL CANCER METASTATIC
     Dosage: FORM- INFUSION
     Route: 042
     Dates: start: 20140124
  3. CAPECITABINE [Suspect]
     Indication: COLORECTAL CANCER METASTATIC
     Route: 048
     Dates: start: 20131120, end: 20131204
  4. CAPECITABINE [Suspect]
     Indication: COLORECTAL CANCER METASTATIC
     Route: 048
     Dates: start: 20140124
  5. BEVACIZUMAB [Suspect]
     Indication: COLORECTAL CANCER METASTATIC
     Route: 042
     Dates: start: 20131120, end: 20131120
  6. PANAMAX [Concomitant]
  7. VANCOMYCIN [Concomitant]
  8. TAZOCIN [Concomitant]
  9. GENTAMICIN SULFATE [Concomitant]

REACTIONS (2)
  - Gangrene [Recovering/Resolving]
  - Sepsis [Recovered/Resolved]
